FAERS Safety Report 15287003 (Version 1)
Quarter: 2018Q3

REPORT INFORMATION
  Report Type: Spontaneous
  Country: US (occurrence: US)
  Receive Date: 20180817
  Receipt Date: 20180817
  Transmission Date: 20181010
  Serious: No
  Sender: FDA-Public Use
  Company Number: US-009507513-1808USA006060

PATIENT
  Sex: Female

DRUGS (1)
  1. FOSAMAX [Suspect]
     Active Substance: ALENDRONATE SODIUM
     Dosage: UNK

REACTIONS (5)
  - Carpal tunnel syndrome [Unknown]
  - Arthritis [Unknown]
  - Product use complaint [Unknown]
  - Wrong technique in product usage process [Unknown]
  - Product quality issue [Unknown]
